APPROVED DRUG PRODUCT: CLEOCIN
Active Ingredient: CLINDAMYCIN PHOSPHATE
Strength: 100MG
Dosage Form/Route: SUPPOSITORY;VAGINAL
Application: N050767 | Product #001
Applicant: PFIZER INC
Approved: Aug 13, 1999 | RLD: Yes | RS: Yes | Type: RX